FAERS Safety Report 7334392-0 (Version None)
Quarter: 2011Q1

REPORT INFORMATION
  Report Type: 
  Country: None (occurrence: None)
  Receive Date: 20110307
  Receipt Date: 20110222
  Transmission Date: 20110831
  Serious: No
  Sender: FDA-Public Use
  Company Number: PHHY2010DE17114

PATIENT
  Age: 80 Year
  Sex: Female

DRUGS (1)
  1. DIOVAN FORTE [Suspect]
     Dosage: 320 MG, UNK
     Route: 048
     Dates: start: 20090101, end: 20090701

REACTIONS (5)
  - BACTERIAL INFECTION [None]
  - IMPAIRED HEALING [None]
  - BLOOD PRESSURE INADEQUATELY CONTROLLED [None]
  - DIZZINESS [None]
  - ARTHRITIS INFECTIVE [None]
